FAERS Safety Report 5572358-1 (Version None)
Quarter: 2007Q4

REPORT INFORMATION
  Report Type: 
  Country: None (occurrence: None)
  Receive Date: 20071219
  Receipt Date: 20070320
  Transmission Date: 20080405
  Serious: Yes (Hospitalization)
  Sender: FDA-Public Use
  Company Number: 64875

PATIENT
  Sex: Female

DRUGS (13)
  1. IBUPROFEN [Suspect]
     Dosage: 400MG/3/1DAYS/ORAL
     Route: 048
     Dates: start: 20070115, end: 20070213
  2. ALFACALCIDOL [Concomitant]
  3. CALCIUM CARBONATE [Concomitant]
  4. BECOTIDE [Concomitant]
  5. COMBIVENT [Concomitant]
  6. EFLORNITHINE [Concomitant]
  7. ESOMEPRAZOLE [Concomitant]
  8. FELODIPINE [Concomitant]
  9. HYPROMELLOSE [Concomitant]
  10. LACRI-LUBEL [Concomitant]
  11. PRAVASTATIN [Concomitant]
  12. SEREVENT [Concomitant]
  13. PERINDOPRIL [Concomitant]

REACTIONS (1)
  - GASTRIC ULCER [None]
